FAERS Safety Report 25640858 (Version 1)
Quarter: 2025Q3

REPORT INFORMATION
  Report Type: Spontaneous
  Country: EU (occurrence: EU)
  Receive Date: 20250804
  Receipt Date: 20250804
  Transmission Date: 20251021
  Serious: Yes (Death)
  Sender: ABBVIE
  Company Number: EU-ABBVIE-6399346

PATIENT
  Sex: Male
  Weight: 140 kg

DRUGS (2)
  1. SKYRIZI [Suspect]
     Active Substance: RISANKIZUMAB-RZAA
     Indication: Psoriasis
     Route: 058
     Dates: start: 20200113, end: 20241125
  2. IVABRADINE [Concomitant]
     Active Substance: IVABRADINE
     Indication: Hypertension
     Dosage: 10 MILLIGRAM, FORM STRENGTH: 5 MILLIGRAM
     Route: 048
     Dates: start: 2019, end: 2025

REACTIONS (1)
  - Road traffic accident [Fatal]
